FAERS Safety Report 8020497-8 (Version None)
Quarter: 2012Q1

REPORT INFORMATION
  Report Type: 
  Country: None (occurrence: None)
  Receive Date: 20120103
  Receipt Date: 20111219
  Transmission Date: 20120608
  Serious: Yes (Other)
  Sender: FDA-Public Use
  Company Number: US-AMGEN-USASP2011018352

PATIENT
  Sex: Female

DRUGS (21)
  1. METOPROLOL TARTRATE [Concomitant]
  2. AMBIEN [Concomitant]
  3. MIRAPEX [Concomitant]
     Dosage: 0.75 MG, TID
  4. BUMEX [Concomitant]
     Dosage: 1 MG, UNK
  5. KLOR-CON M10 [Concomitant]
     Dosage: UNK UNK, BID
  6. METOLAZONE [Concomitant]
     Dosage: 5.0 MG, QWK
  7. PRILOSEC [Concomitant]
     Dosage: 20 MG, QD
  8. WARFARIN SODIUM [Concomitant]
     Dosage: 5 MG, QD
  9. VIACTIV                            /00751501/ [Concomitant]
  10. VITAMIN D [Concomitant]
  11. CREON [Concomitant]
  12. WARFARIN SODIUM [Concomitant]
     Dosage: 7.5 MG, ONE TIME DOSE
  13. PROLIA [Suspect]
     Indication: OSTEOPOROSIS
     Dosage: 60 MG, Q6MO
     Dates: start: 20101025
  14. CALCIUM WITH VITAMIN D             /00944201/ [Concomitant]
  15. LEXAPRO [Concomitant]
     Dosage: UNK
     Dates: start: 20110301, end: 20110301
  16. FLECAINIDE ACETATE [Concomitant]
     Dosage: 50 MG, BID
  17. AMITIZA [Concomitant]
     Dosage: 0.24 MG, UNK
  18. LASIX [Concomitant]
  19. DIGOXIN [Concomitant]
     Dosage: 0.125 MG, QD
  20. CARBIDOPA AND LEVODOPA [Concomitant]
     Dosage: UNK UNK, TID
  21. XANAX [Concomitant]

REACTIONS (7)
  - PARKINSON'S DISEASE [None]
  - ARTHRALGIA [None]
  - PAIN [None]
  - BACK PAIN [None]
  - PAIN IN EXTREMITY [None]
  - VASCULAR RESISTANCE PULMONARY INCREASED [None]
  - BURNING SENSATION [None]
